FAERS Safety Report 8602295-7 (Version None)
Quarter: 2012Q3

REPORT INFORMATION
  Report Type: 
  Country: None (occurrence: None)
  Receive Date: 20120817
  Receipt Date: 20120815
  Transmission Date: 20120928
  Serious: Yes (Hospitalization)
  Sender: FDA-Public Use
  Company Number: NL-AMGEN-NLDSP2012019046

PATIENT
  Age: 54 Year
  Sex: Female
  Weight: 67 kg

DRUGS (13)
  1. CYCLOPHOSPHAMIDE [Concomitant]
     Indication: DIFFUSE LARGE B-CELL LYMPHOMA
     Dosage: 1400 MG, UNK
     Route: 042
     Dates: start: 20120127
  2. VINCRISTINE [Concomitant]
     Indication: DIFFUSE LARGE B-CELL LYMPHOMA
     Dosage: 2 MG, UNK
     Route: 042
     Dates: start: 20120127
  3. CLEMASTINE [Concomitant]
     Dosage: 2 MG, UNK
     Route: 042
     Dates: start: 20120127, end: 20120302
  4. DOXORUBICIN HYDROCHLORIDE [Concomitant]
     Indication: DIFFUSE LARGE B-CELL LYMPHOMA
     Dosage: 92 MG, UNK
     Route: 042
     Dates: start: 20120127
  5. SEROQUEL [Concomitant]
     Dosage: 300 MG, UNK
     Route: 048
     Dates: end: 20120304
  6. MOVICOLON [Concomitant]
     Dosage: UNK
     Dates: start: 20120127
  7. PREDNISONE TAB [Concomitant]
     Indication: DIFFUSE LARGE B-CELL LYMPHOMA
     Dosage: 100 MG, UNK
     Route: 048
     Dates: start: 20120127
  8. PANTOPRAZOLE [Concomitant]
     Dosage: 1 DF, QD
     Route: 048
     Dates: start: 20120127, end: 20120304
  9. RITUXIMAB [Concomitant]
     Indication: DIFFUSE LARGE B-CELL LYMPHOMA
     Dosage: 690 MG, UNK
     Route: 042
     Dates: start: 20120127
  10. RANITIDINE [Concomitant]
     Dosage: 50 MG, UNK
     Route: 042
     Dates: start: 20120127, end: 20120302
  11. ACETAMINOPHEN [Concomitant]
     Dosage: 1000 MG, UNK
     Route: 048
     Dates: start: 20120127, end: 20120302
  12. SUMATRIPTAN SUCCINATE [Concomitant]
     Dosage: UNK
  13. PEGFILGRASTIM [Suspect]
     Indication: DIFFUSE LARGE B-CELL LYMPHOMA
     Dosage: 6 MG, UNK
     Route: 058
     Dates: start: 20120127

REACTIONS (2)
  - FEBRILE NEUTROPENIA [None]
  - PYREXIA [None]
